FAERS Safety Report 12693009 (Version 1)
Quarter: 2016Q3

REPORT INFORMATION
  Report Type: Spontaneous
  Country: IT (occurrence: IT)
  Receive Date: 20160829
  Receipt Date: 20160829
  Transmission Date: 20161109
  Serious: Yes (Hospitalization)
  Sender: FDA-Public Use
  Company Number: IT-ROCHE-1821282

PATIENT
  Age: 53 Year
  Sex: Female
  Weight: 60 kg

DRUGS (5)
  1. TRIMETON (ITALY) [Concomitant]
     Indication: HYPERSENSITIVITY
     Dosage: 10 MG/1 ML SOLUTION FOR INJECTION^ 5 X 1 ML VIALS
     Route: 042
     Dates: start: 20150311, end: 20160825
  2. KADCYLA [Suspect]
     Active Substance: ADO-TRASTUZUMAB EMTANSINE
     Indication: BREAST CANCER
     Dosage: 160 MG - VIAL (GLASS) - 1 VIAL
     Route: 042
     Dates: start: 20150311, end: 20160825
  3. ZANTAC [Concomitant]
     Active Substance: RANITIDINE HYDROCHLORIDE
     Indication: PROPHYLAXIS OF NAUSEA AND VOMITING
     Dosage: 50 MG/5 ML SOLUTION FOR INJECTION 10 VIALS
     Route: 042
     Dates: start: 20150311, end: 20160825
  4. GRANISETRON HYDROCHLORIDE. [Concomitant]
     Active Substance: GRANISETRON HYDROCHLORIDE
     Indication: PROPHYLAXIS OF NAUSEA AND VOMITING
     Dosage: 1 MG 5 X 3 ML GLASS VIALS
     Route: 042
     Dates: start: 20150311, end: 20160825
  5. SOLDESAM [Concomitant]
     Active Substance: DEXAMETHASONE
     Indication: INFLAMMATION
     Dosage: 4 MG/ML SOLUTION FOR INJECTION^ 3 X 1 ML VIALS
     Route: 042
     Dates: start: 20150311, end: 20160825

REACTIONS (1)
  - Enteritis [Recovered/Resolved]

NARRATIVE: CASE EVENT DATE: 20160709
